FAERS Safety Report 5721690-7 (Version None)
Quarter: 2008Q2

REPORT INFORMATION
  Report Type: 
  Country: None (occurrence: None)
  Receive Date: 20080429
  Receipt Date: 20070424
  Transmission Date: 20081010
  Serious: No
  Sender: FDA-Public Use
  Company Number: US-ASTRAZENECA-2007UW08009

PATIENT
  Age: 66 Year
  Sex: Female
  Weight: 85.3 kg

DRUGS (3)
  1. NEXIUM [Suspect]
     Indication: GASTROOESOPHAGEAL REFLUX DISEASE
     Route: 048
     Dates: start: 20050101
  2. ESTROGEN [Concomitant]
  3. SYNTHROID [Concomitant]

REACTIONS (1)
  - OSTEOPENIA [None]
